FAERS Safety Report 10636284 (Version 1)
Quarter: 2014Q4

REPORT INFORMATION
  Report Type: Spontaneous
  Country: US (occurrence: None)
  Receive Date: 20141203
  Receipt Date: 20141203
  Transmission Date: 20150529
  Serious: No
  Sender: FDA-Public Use
  Company Number: None

PATIENT
  Age: 71 Year
  Sex: Male
  Weight: 76.8 kg

DRUGS (7)
  1. POTASSIUM [Concomitant]
     Active Substance: POTASSIUM
  2. FOSAPREPITANT [Concomitant]
     Active Substance: FOSAPREPITANT
  3. CISPLATIN. [Suspect]
     Active Substance: CISPLATIN
     Indication: TONSIL CANCER
     Route: 042
     Dates: start: 20141201, end: 20141201
  4. PALONSETRON [Concomitant]
  5. CARBOPLATIN. [Suspect]
     Active Substance: CARBOPLATIN
  6. DEXAMETHASONE. [Concomitant]
     Active Substance: DEXAMETHASONE
  7. MAGENSIUM [Concomitant]

REACTIONS (2)
  - Product container issue [None]
  - Incorrect dose administered [None]

NARRATIVE: CASE EVENT DATE: 20141201
